FAERS Safety Report 14101990 (Version 11)
Quarter: 2018Q3

REPORT INFORMATION
  Report Type: Report from Study
  Country: US (occurrence: US)
  Receive Date: 20171018
  Receipt Date: 20180827
  Transmission Date: 20181010
  Serious: Yes (Hospitalization)
  Sender: FDA-Public Use
  Company Number: US-ROCHE-1978207

PATIENT
  Age: 61 Year
  Sex: Female
  Weight: 70.9 kg

DRUGS (30)
  1. ATEZOLIZUMAB. [Suspect]
     Active Substance: ATEZOLIZUMAB
     Indication: B-CELL LYMPHOMA
     Dosage: ON DAY 1 CYCLES 2?6, DURING INDUCTION TREATMENT, FOLLOWED BY 840 MG IV ON DAYS 1 AND 2 OF EACH MONTH
     Route: 042
     Dates: start: 20160608
  2. DOXORUBICIN [Suspect]
     Active Substance: DOXORUBICIN
     Indication: B-CELL LYMPHOMA
     Dosage: AT A DOSE OF 50 MG/M^2 IV ON DAY 1 OF CYCLE 1?6/8, DURING INDUCTION TREATMENT.?MOST RECENT DOSE ON 3
     Route: 042
     Dates: start: 20160518
  3. CALCIUM CITRATE [Concomitant]
     Active Substance: CALCIUM CITRATE
  4. CITALOPRAM HYDROBROMIDE. [Concomitant]
     Active Substance: CITALOPRAM HYDROBROMIDE
     Indication: DEPRESSION
  5. VINCRISTINE [Suspect]
     Active Substance: VINCRISTINE
     Indication: B-CELL LYMPHOMA
     Dosage: AT A DOSE OF 1.4 MG/M^2 (MAXIMUM 2 MG) IV ON DAY 1 OF CYCLE 1?6/8, DURING INDUCTION TREATMENT.?MOST
     Route: 042
     Dates: start: 20160518
  6. SALINE [Concomitant]
     Active Substance: SODIUM CHLORIDE
     Indication: SINUS CONGESTION
     Dosage: NASAL SINUS RINSE
     Route: 065
     Dates: start: 20180411
  7. MOTRIN [Concomitant]
     Active Substance: IBUPROFEN
     Indication: PAIN
     Route: 065
     Dates: start: 20180505, end: 20180507
  8. TRAZODONE [Concomitant]
     Active Substance: TRAZODONE HYDROCHLORIDE
     Indication: DEPRESSION
  9. IBUPROFEN. [Concomitant]
     Active Substance: IBUPROFEN
     Indication: HERPES ZOSTER
     Route: 065
     Dates: start: 20160904
  10. ZYRTEC [Concomitant]
     Active Substance: CETIRIZINE HYDROCHLORIDE
     Indication: COUGH
  11. ENOXAPARIN [Concomitant]
     Active Substance: ENOXAPARIN
     Indication: THROMBOSIS PROPHYLAXIS
     Route: 065
     Dates: start: 20180505, end: 20180507
  12. BACITRACIN. [Concomitant]
     Active Substance: BACITRACIN
     Indication: SKIN INFECTION
     Route: 061
     Dates: start: 20180506, end: 20180507
  13. OBINUTUZUMAB. [Suspect]
     Active Substance: OBINUTUZUMAB
     Indication: B-CELL LYMPHOMA
     Dosage: DATE OF MOST RECENT DOSE OF OBINUTUZUMAB PRIOR TO AE ONSET: 02/AUG/2017 (840 MG)?DATE OF MOST RECENT
     Route: 042
     Dates: start: 20160518
  14. LIDOCAINE. [Concomitant]
     Active Substance: LIDOCAINE
     Indication: HERPES ZOSTER
     Route: 065
     Dates: start: 20160907
  15. VALACYCLOVIR [Concomitant]
     Active Substance: VALACYCLOVIR HYDROCHLORIDE
     Indication: HERPES ZOSTER
     Route: 065
     Dates: start: 20160904
  16. LORATADINE. [Concomitant]
     Active Substance: LORATADINE
     Indication: SEASONAL ALLERGY
     Route: 065
     Dates: start: 20180505, end: 20180507
  17. PANTOPRAZOL [Concomitant]
     Active Substance: PANTOPRAZOLE SODIUM
     Indication: COUGH
  18. TYLENOL [Concomitant]
     Active Substance: ACETAMINOPHEN
     Indication: PAIN
     Route: 065
     Dates: start: 20180505, end: 20180507
  19. PREDNISONE. [Suspect]
     Active Substance: PREDNISONE
     Indication: B-CELL LYMPHOMA
     Dosage: AT A DOSE OF 40 MG/M^2 ORALLY ON DAYS 1?5 OF CYCLE 1?6/8, DURING INDUCTION TREATMENT?MOST RECENT DOS
     Route: 048
     Dates: start: 20160519
  20. LUNESTA [Concomitant]
     Active Substance: ESZOPICLONE
     Indication: SLEEP DISORDER
  21. ZYRTEC [Concomitant]
     Active Substance: CETIRIZINE HYDROCHLORIDE
     Indication: SINUS CONGESTION
     Route: 065
     Dates: start: 20180502
  22. CYCLOPHOSPHAMIDE. [Suspect]
     Active Substance: CYCLOPHOSPHAMIDE
     Indication: B-CELL LYMPHOMA
     Dosage: AT A DOSE OF 750 MG/M^2 IV ON DAY 1 OF CYCLE 1?6/8, DURING INDUCTION TREATMENT.?MOST RECENT DOSE ON
     Route: 042
     Dates: start: 20160518
  23. OMEPRAZOLE. [Concomitant]
     Active Substance: OMEPRAZOLE
     Indication: GASTROOESOPHAGEAL REFLUX DISEASE
  24. METHYLPREDNISOLONE. [Suspect]
     Active Substance: METHYLPREDNISOLONE
     Indication: B-CELL LYMPHOMA
     Route: 048
     Dates: start: 20160518
  25. GABAPENTIN. [Concomitant]
     Active Substance: GABAPENTIN
     Indication: HERPES ZOSTER
     Route: 065
     Dates: start: 20160907
  26. PANTOPRAZOL [Concomitant]
     Active Substance: PANTOPRAZOLE SODIUM
     Indication: GASTROOESOPHAGEAL REFLUX DISEASE
     Route: 065
     Dates: start: 20180507, end: 20180510
  27. TESSALON [Concomitant]
     Active Substance: BENZONATATE
     Indication: COUGH
     Route: 065
     Dates: start: 20180505, end: 20180507
  28. LEVOFLOXACIN. [Concomitant]
     Active Substance: LEVOFLOXACIN
     Indication: FEBRILE NEUTROPENIA
     Route: 065
     Dates: start: 20180510, end: 20180516
  29. ASCORBIC ACID. [Concomitant]
     Active Substance: ASCORBIC ACID
  30. OMEPRAZOLE. [Concomitant]
     Active Substance: OMEPRAZOLE
     Indication: COUGH
     Route: 065
     Dates: start: 20170830

REACTIONS (2)
  - Febrile neutropenia [Recovered/Resolved]
  - Neutropenia [Recovered/Resolved]

NARRATIVE: CASE EVENT DATE: 20170809
